FAERS Safety Report 25364213 (Version 3)
Quarter: 2025Q3

REPORT INFORMATION
  Report Type: Spontaneous
  Country: US (occurrence: US)
  Receive Date: 20250527
  Receipt Date: 20250730
  Transmission Date: 20251021
  Serious: Yes (Other)
  Sender: UROGEN PHARMA
  Company Number: US-UROGEN PHARMA LTD.-2025-UGN-000094

PATIENT

DRUGS (5)
  1. JELMYTO [Suspect]
     Active Substance: MITOMYCIN
     Indication: Transitional cell cancer of the renal pelvis and ureter
     Dosage: 80 MG, INSTILLATION (ADMINISTERED AS 12 CC RIGHT KIDNEY)
     Dates: start: 20250513, end: 20250513
  2. JELMYTO [Suspect]
     Active Substance: MITOMYCIN
     Dosage: 80 MG, INSTILLATION (ADMINISTERED AS 12 CC RIGHT KIDNEY)
     Dates: start: 20250527, end: 20250527
  3. JELMYTO [Suspect]
     Active Substance: MITOMYCIN
     Dosage: 80 MG, INSTILLATION (ADMINISTERED AS 12 CC RIGHT KIDNEY)
     Dates: start: 20250603, end: 20250603
  4. JELMYTO [Suspect]
     Active Substance: MITOMYCIN
     Dosage: 80 MG, INSTILLATION (ADMINISTERED AS 12 CC RIGHT KIDNEY)
     Dates: start: 20250610, end: 20250610
  5. JELMYTO [Suspect]
     Active Substance: MITOMYCIN
     Dosage: 36 MILLIGRAM, INSTILLATION, ONCE A WEEK
     Dates: start: 20250617, end: 20250617

REACTIONS (2)
  - Urinary tract infection pseudomonal [Recovered/Resolved]
  - Device dislocation [Recovered/Resolved]

NARRATIVE: CASE EVENT DATE: 20250509
